FAERS Safety Report 7590350-2 (Version None)
Quarter: 2011Q3

REPORT INFORMATION
  Report Type: 
  Country: None (occurrence: None)
  Receive Date: 20110705
  Receipt Date: 20110624
  Transmission Date: 20111222
  Serious: Yes (Other)
  Sender: FDA-Public Use
  Company Number: US-ELI_LILLY_AND_COMPANY-US201106004764

PATIENT
  Sex: Male

DRUGS (3)
  1. VIAGRA [Concomitant]
     Indication: ERECTILE DYSFUNCTION
     Dosage: 100 MG, PRN
     Route: 048
     Dates: end: 20080101
  2. WELLBUTRIN [Concomitant]
     Dosage: UNK
  3. CIALIS [Suspect]
     Dosage: UNK, UNKNOWN

REACTIONS (7)
  - DRUG INEFFECTIVE [None]
  - ANGIOPATHY [None]
  - OPEN WOUND [None]
  - BACK CRUSHING [None]
  - SPINAL COLUMN INJURY [None]
  - ROAD TRAFFIC ACCIDENT [None]
  - WOUND HAEMORRHAGE [None]
